FAERS Safety Report 23481826 (Version 1)
Quarter: 2024Q1

REPORT INFORMATION
  Report Type: Spontaneous
  Country: FR (occurrence: FR)
  Receive Date: 20240205
  Receipt Date: 20240205
  Transmission Date: 20240409
  Serious: Yes (Other)
  Sender: FDA-Public Use
  Company Number: None

PATIENT
  Age: 39 Year
  Sex: Female

DRUGS (4)
  1. ALENDRONATE SODIUM [Concomitant]
     Active Substance: ALENDRONATE SODIUM
  2. EVRYSDI [Suspect]
     Active Substance: RISDIPLAM
     Indication: Spinal muscular atrophy
     Dosage: 5 MILLIGRAM, QD
     Route: 048
     Dates: start: 202012
  3. ETHINYL ESTRADIOL\LEVONORGESTREL [Suspect]
     Active Substance: ETHINYL ESTRADIOL\LEVONORGESTREL
     Indication: Contraception
     Dosage: 1 CP PENDANT 21 JOURS
     Route: 048
     Dates: start: 2000, end: 202307
  4. DROSPIRENONE [Suspect]
     Active Substance: DROSPIRENONE
     Indication: Oral contraception
     Dosage: UNK
     Route: 048
     Dates: start: 20230720, end: 202311

REACTIONS (1)
  - Focal nodular hyperplasia [Not Recovered/Not Resolved]

NARRATIVE: CASE EVENT DATE: 20230925
